FAERS Safety Report 24693397 (Version 1)
Quarter: 2024Q4

REPORT INFORMATION
  Report Type: Spontaneous
  Country: FR (occurrence: FR)
  Receive Date: 20241203
  Receipt Date: 20241203
  Transmission Date: 20250115
  Serious: Yes (Hospitalization, Other)
  Sender: SANDOZ
  Company Number: FR-NOVPHSZ-PHHY2019FR000750

PATIENT
  Age: 46 Year
  Sex: Female

DRUGS (5)
  1. CYPROTERONE [Suspect]
     Active Substance: CYPROTERONE
     Indication: Androgenetic alopecia
     Dosage: 50 MG, DAILY
     Route: 048
  2. CYPROTERONE [Suspect]
     Active Substance: CYPROTERONE
     Indication: Hormone replacement therapy
     Dosage: UNK
     Route: 065
  3. ESTRADIOL [Suspect]
     Active Substance: ESTRADIOL
     Indication: Androgenetic alopecia
     Dosage: UNK
     Route: 065
  4. ESTRADIOL [Suspect]
     Active Substance: ESTRADIOL
     Indication: Hormone therapy
  5. ESTRADIOL [Suspect]
     Active Substance: ESTRADIOL
     Indication: Product used for unknown indication

REACTIONS (3)
  - Meningioma [Recovered/Resolved]
  - Paraesthesia [Recovered/Resolved]
  - Ischaemic stroke [Recovered/Resolved]
